FAERS Safety Report 9167392 (Version 2)
Quarter: 2013Q2

REPORT INFORMATION
  Report Type: Report from Study
  Country: CA (occurrence: CA)
  Receive Date: 20130318
  Receipt Date: 20130415
  Transmission Date: 20140414
  Serious: Yes (Hospitalization)
  Sender: FDA-Public Use
  Company Number: CA-JNJFOC-20130302918

PATIENT
  Age: 60 Year
  Sex: Male
  Weight: 110.8 kg

DRUGS (2)
  1. REMICADE [Suspect]
     Indication: CROHN^S DISEASE
     Route: 042
     Dates: start: 20120411
  2. AZATHIOPRINE [Concomitant]
     Route: 065

REACTIONS (2)
  - Colostomy closure [Recovered/Resolved]
  - Postoperative wound infection [Recovered/Resolved]
